FAERS Safety Report 4475902-0 (Version None)
Quarter: 2004Q4

REPORT INFORMATION
  Report Type: 
  Country: None (occurrence: None)
  Receive Date: 20041015
  Receipt Date: 20020515
  Transmission Date: 20050328
  Serious: Yes (Death, Hospitalization, Other)
  Sender: FDA-Public Use
  Company Number: US-AMGEN-US012818

PATIENT
  Age: 41 Year
  Sex: Male

DRUGS (3)
  1. PROCRIT [Suspect]
     Indication: HIV INFECTION
     Route: 058
     Dates: start: 20000801, end: 20020101
  2. INTERFERON [Concomitant]
     Dates: start: 20011101, end: 20011201
  3. RIBAVIRIN [Concomitant]
     Dates: start: 20011101, end: 20011201

REACTIONS (3)
  - APLASIA PURE RED CELL [None]
  - DEATH [None]
  - ERYTHEMA INFECTIOSUM [None]
